FAERS Safety Report 5165420-9 (Version None)
Quarter: 2006Q4

REPORT INFORMATION
  Report Type: 
  Country: None (occurrence: None)
  Receive Date: 20061206
  Receipt Date: 20061127
  Transmission Date: 20070319
  Serious: Yes (Hospitalization)
  Sender: FDA-Public Use
  Company Number: AU-AVENTIS-200616008EU

PATIENT
  Sex: Male

DRUGS (1)
  1. TENUATE [Suspect]
     Dosage: DOSE: UNK
     Dates: start: 20050101, end: 20050101

REACTIONS (1)
  - ROAD TRAFFIC ACCIDENT [None]
